FAERS Safety Report 9390942 (Version 3)
Quarter: 2013Q3

REPORT INFORMATION
  Report Type: Spontaneous
  Country: US (occurrence: US)
  Receive Date: 20130709
  Receipt Date: 20130822
  Transmission Date: 20140515
  Serious: No
  Sender: FDA-Public Use
  Company Number: US-PFIZER INC-2013198582

PATIENT
  Age: 66 Year
  Sex: Female

DRUGS (1)
  1. NEOMYCIN SULFATE [Suspect]
     Indication: AMBLYOPIA
     Dosage: FREQUENT DROPS DAILY
     Route: 047
     Dates: start: 20110415, end: 20110418

REACTIONS (3)
  - Drug hypersensitivity [Recovered/Resolved]
  - Swelling [Recovered/Resolved]
  - Eye pruritus [Recovered/Resolved]
